FAERS Safety Report 6585809-0 (Version None)
Quarter: 2010Q1

REPORT INFORMATION
  Report Type: 
  Country: None (occurrence: None)
  Receive Date: 20100217
  Receipt Date: 20100205
  Transmission Date: 20100710
  Serious: Yes (Other)
  Sender: FDA-Public Use
  Company Number: US-PFIZER INC-2010017825

PATIENT
  Sex: Male
  Weight: 68.481 kg

DRUGS (1)
  1. GEODON [Suspect]
     Indication: ANXIETY
     Dosage: 20MG DAILY
     Dates: start: 20090301

REACTIONS (2)
  - MICTURITION URGENCY [None]
  - OBSESSIVE-COMPULSIVE DISORDER [None]
